FAERS Safety Report 11330958 (Version 1)
Quarter: 2015Q3

REPORT INFORMATION
  Report Type: Spontaneous
  Country: US (occurrence: None)
  Receive Date: 20150731
  Receipt Date: 20150731
  Transmission Date: 20151125
  Serious: Yes (Hospitalization)
  Sender: FDA-Public Use
  Company Number: None

PATIENT
  Age: 55 Year
  Sex: Female

DRUGS (5)
  1. INSULIN ASPART [Concomitant]
     Active Substance: INSULIN ASPART
  2. LISINOPRIL. [Concomitant]
     Active Substance: LISINOPRIL
  3. VANCOMYCIN [Suspect]
     Active Substance: VANCOMYCIN
     Indication: ARTHRITIS BACTERIAL
     Route: 042
     Dates: start: 20141015, end: 20141030
  4. INSULIN DETEMIR [Concomitant]
     Active Substance: INSULIN DETEMIR
  5. PIPERACILLIN/ TAZOBACTAM [Concomitant]
     Active Substance: PIPERACILLIN SODIUM\TAZOBACTAM SODIUM

REACTIONS (1)
  - Red man syndrome [None]

NARRATIVE: CASE EVENT DATE: 20141029
